FAERS Safety Report 9098672 (Version 2)
Quarter: 2013Q1

REPORT INFORMATION
  Report Type: Spontaneous
  Country: US (occurrence: US)
  Receive Date: 20130213
  Receipt Date: 20130308
  Transmission Date: 20140127
  Serious: Yes (Hospitalization)
  Sender: FDA-Public Use
  Company Number: US-B.I. PHARMACEUTICALS,INC./RIDGEFIELD-2013-BI-03522BP

PATIENT
  Age: 68 Year
  Sex: Male
  Weight: 97.52 kg

DRUGS (9)
  1. PRADAXA [Suspect]
     Indication: ANTICOAGULANT THERAPY
     Dosage: 300 MG
     Dates: start: 20110915, end: 20120315
  2. PRADAXA [Suspect]
     Indication: ATRIAL FIBRILLATION
  3. LISINOPRIL/HCTZ [Concomitant]
     Route: 048
     Dates: start: 2010
  4. LANTUS [Concomitant]
     Dosage: 40 U
     Route: 058
     Dates: start: 2009
  5. METFORMIN [Concomitant]
     Dosage: 500 MG
     Route: 048
     Dates: start: 2002
  6. COREG [Concomitant]
     Dosage: 6.25 MG
     Route: 048
  7. ASPIRIN [Concomitant]
     Indication: CORONARY ARTERY DISEASE
     Dosage: 81 MG
     Route: 048
  8. FENOFIBRATE [Concomitant]
     Dosage: 134 MG
     Route: 048
  9. LIPITOR [Concomitant]
     Dosage: 80 MG
     Route: 048

REACTIONS (7)
  - Rectal haemorrhage [Unknown]
  - Haemoglobin [Unknown]
  - Haematochezia [Unknown]
  - Haemoglobin [Unknown]
  - Gastrointestinal ulcer [Unknown]
  - Gastrointestinal haemorrhage [Unknown]
  - Anaemia [Unknown]
